FAERS Safety Report 6516221-8 (Version None)
Quarter: 2009Q4

REPORT INFORMATION
  Report Type: 
  Country: None (occurrence: None)
  Receive Date: 20091214
  Receipt Date: 20090217
  Transmission Date: 20100525
  Serious: Yes (Other)
  Sender: FDA-Public Use
  Company Number: US-JNJFOC-20090204743

PATIENT
  Age: 24 Month
  Sex: Male

DRUGS (1)
  1. PEPCID COMPLETE BERRY [Suspect]
     Indication: ACCIDENTAL EXPOSURE
     Dosage: 3 DOSE (S), 1 IN 1 TOTAL, ORAL
     Route: 048
     Dates: start: 20090217, end: 20090217

REACTIONS (2)
  - ACCIDENTAL DRUG INTAKE BY CHILD [None]
  - ACCIDENTAL OVERDOSE [None]
